FAERS Safety Report 6539866-8 (Version None)
Quarter: 2010Q1

REPORT INFORMATION
  Report Type: 
  Country: None (occurrence: None)
  Receive Date: 20100115
  Receipt Date: 20100106
  Transmission Date: 20100710
  Serious: Yes (Other)
  Sender: FDA-Public Use
  Company Number: US-WYE-H12861710

PATIENT
  Age: 55 Year
  Sex: Male

DRUGS (4)
  1. PRISTIQ [Suspect]
     Indication: MAJOR DEPRESSION
     Route: 048
     Dates: end: 20080601
  2. TYLENOL (CAPLET) [Suspect]
     Dosage: OVERDOSE AMOUNT UNKNOWN
     Dates: start: 20080601, end: 20080601
  3. TRAZODONE HCL [Concomitant]
     Dosage: UNKNOWN
  4. XANAX [Suspect]
     Dosage: OVERDOSE AMOUNT UNKNOWN
     Dates: start: 20080601, end: 20080601

REACTIONS (5)
  - AGGRESSION [None]
  - HOSTILITY [None]
  - INTENTIONAL OVERDOSE [None]
  - PHYSICAL ASSAULT [None]
  - SUICIDE ATTEMPT [None]
